FAERS Safety Report 6022246-1 (Version None)
Quarter: 2008Q4

REPORT INFORMATION
  Report Type: 
  Country: None (occurrence: None)
  Receive Date: 20081229
  Receipt Date: 20081217
  Transmission Date: 20090506
  Serious: Yes (Other)
  Sender: FDA-Public Use
  Company Number: US-PFIZER INC-2008159241

PATIENT
  Sex: Female
  Weight: 98.866 kg

DRUGS (3)
  1. NICOTROL [Suspect]
     Indication: SMOKING CESSATION THERAPY
     Dosage: 10 MG, UNK
  2. WARFARIN [Concomitant]
     Dosage: UNK
  3. ALL OTHER THERAPEUTIC PRODUCTS [Concomitant]

REACTIONS (6)
  - DIZZINESS [None]
  - HEADACHE [None]
  - INSOMNIA [None]
  - RESPIRATORY ARREST [None]
  - SURGERY [None]
  - VISION BLURRED [None]
